FAERS Safety Report 5104125-7 (Version None)
Quarter: 2006Q3

REPORT INFORMATION
  Report Type: 
  Country: None (occurrence: None)
  Receive Date: 20060911
  Receipt Date: 20060830
  Transmission Date: 20061208
  Serious: No
  Sender: FDA-Public Use
  Company Number: 2006-147401-NL

PATIENT

DRUGS (2)
  1. MIRTAZAPINE [Suspect]
     Dosage: 30 MG/15 MG ORAL
     Route: 048
     Dates: start: 20060101, end: 20060101
  2. MIRTAZAPINE [Suspect]
     Dosage: 30 MG/15 MG ORAL
     Route: 048
     Dates: end: 20060101

REACTIONS (2)
  - TACHYCARDIA [None]
  - THERAPY NON-RESPONDER [None]
